FAERS Safety Report 12175290 (Version 5)
Quarter: 2016Q2

REPORT INFORMATION
  Report Type: Spontaneous
  Country: US (occurrence: US)
  Receive Date: 20160314
  Receipt Date: 20160512
  Transmission Date: 20160815
  Serious: Yes (Hospitalization)
  Sender: FDA-Public Use
  Company Number: US-BEH-2016059838

PATIENT
  Age: 56 Year
  Sex: Male
  Weight: 74 kg

DRUGS (38)
  1. ZEMAIRA [Suspect]
     Active Substance: .ALPHA.1-PROTEINASE INHIBITOR HUMAN
     Indication: ALPHA-1 ANTI-TRYPSIN DEFICIENCY
  2. BACTRIM DS [Concomitant]
     Active Substance: SULFAMETHOXAZOLE\TRIMETHOPRIM
  3. ZOSYN [Concomitant]
     Active Substance: PIPERACILLIN SODIUM\TAZOBACTAM SODIUM
  4. AVELOX [Concomitant]
     Active Substance: MOXIFLOXACIN HYDROCHLORIDE
  5. ZEMAIRA [Suspect]
     Active Substance: .ALPHA.1-PROTEINASE INHIBITOR HUMAN
  6. AUGMENTIN [Concomitant]
     Active Substance: AMOXICILLIN\CLAVULANATE POTASSIUM
  7. ZYCLARA [Concomitant]
     Active Substance: IMIQUIMOD
  8. METFORMIN [Concomitant]
     Active Substance: METFORMIN HYDROCHLORIDE
  9. TAMIFLU [Concomitant]
     Active Substance: OSELTAMIVIR PHOSPHATE
  10. SPIRIVA [Concomitant]
     Active Substance: TIOTROPIUM BROMIDE MONOHYDRATE
  11. ZEMAIRA [Suspect]
     Active Substance: .ALPHA.1-PROTEINASE INHIBITOR HUMAN
  12. COLISTIMETHATE [Concomitant]
     Active Substance: COLISTIMETHATE SODIUM
  13. PREDNISONE. [Concomitant]
     Active Substance: PREDNISONE
  14. IBUPROFEN. [Concomitant]
     Active Substance: IBUPROFEN
  15. KLOR-CON [Concomitant]
     Active Substance: POTASSIUM CHLORIDE
  16. SODIUM CHLORIDE. [Concomitant]
     Active Substance: SODIUM CHLORIDE
  17. PREDNISONE. [Concomitant]
     Active Substance: PREDNISONE
  18. OXYGEN. [Concomitant]
     Active Substance: OXYGEN
  19. CALCIUM D [Concomitant]
     Active Substance: CALCIUM\VITAMIN D
  20. PROAIR HFA [Concomitant]
     Active Substance: ALBUTEROL SULFATE
  21. MARIJUANA [Concomitant]
     Active Substance: CANNABIS SATIVA SUBSP. INDICA TOP
  22. LEVOFLOXACIN. [Concomitant]
     Active Substance: LEVOFLOXACIN
  23. PRAVASTATIN [Concomitant]
     Active Substance: PRAVASTATIN\PRAVASTATIN SODIUM
  24. FLUCTICASONE [Concomitant]
  25. LASIX [Concomitant]
     Active Substance: FUROSEMIDE
  26. VORICONAZOLE. [Concomitant]
     Active Substance: VORICONAZOLE
  27. DIPHENHYDRAMINE. [Concomitant]
     Active Substance: DIPHENHYDRAMINE
  28. METFORMIN [Concomitant]
     Active Substance: METFORMIN HYDROCHLORIDE
  29. SYMBICORT [Concomitant]
     Active Substance: BUDESONIDE\FORMOTEROL FUMARATE DIHYDRATE
  30. MUCINEX ER [Concomitant]
  31. DOXYCYCLINE HYCLATE. [Concomitant]
     Active Substance: DOXYCYCLINE HYCLATE
  32. ZEMAIRA [Suspect]
     Active Substance: .ALPHA.1-PROTEINASE INHIBITOR HUMAN
     Route: 042
     Dates: start: 20140115
  33. EPIPEN [Concomitant]
     Active Substance: EPINEPHRINE
  34. HYPER SAL [Concomitant]
     Active Substance: SODIUM CHLORIDE
  35. PULMOZYME [Concomitant]
     Active Substance: DORNASE ALFA
  36. PANTOPRAZOLE [Concomitant]
     Active Substance: PANTOPRAZOLE SODIUM
  37. CIPRODEX [Concomitant]
     Active Substance: CIPROFLOXACIN HYDROCHLORIDE\DEXAMETHASONE
  38. DUONEB [Concomitant]
     Active Substance: ALBUTEROL SULFATE\IPRATROPIUM BROMIDE

REACTIONS (8)
  - Pneumonia [Recovered/Resolved]
  - Sputum discoloured [Unknown]
  - Streptococcal infection [Unknown]
  - Nocardiosis [Unknown]
  - Pseudomonas infection [Unknown]
  - Pyrexia [Unknown]
  - Corona virus infection [Unknown]
  - Alcaligenes infection [Unknown]

NARRATIVE: CASE EVENT DATE: 20160331
